FAERS Safety Report 18556769 (Version 9)
Quarter: 2022Q1

REPORT INFORMATION
  Report Type: Report from Study
  Country: CO (occurrence: CO)
  Receive Date: 20201128
  Receipt Date: 20220221
  Transmission Date: 20220423
  Serious: Yes (Other)
  Sender: FDA-Public Use
  Company Number: NVSC2020CO268426

PATIENT
  Sex: Male
  Weight: 50 kg

DRUGS (5)
  1. VOTRIENT [Suspect]
     Active Substance: PAZOPANIB HYDROCHLORIDE
     Indication: Metastatic renal cell carcinoma
     Dosage: 400 MG, QD (TABLET)
     Route: 048
     Dates: start: 201901
  2. VOTRIENT [Suspect]
     Active Substance: PAZOPANIB HYDROCHLORIDE
     Dosage: 400 MG, QD (TABLET)
     Route: 048
     Dates: end: 202104
  3. VOTRIENT [Suspect]
     Active Substance: PAZOPANIB HYDROCHLORIDE
     Dosage: 400 MG, QD (TABLET)
     Route: 048
  4. VOTRIENT [Suspect]
     Active Substance: PAZOPANIB HYDROCHLORIDE
     Dosage: UNK, (MORE THAN 2 YEARS) (TABLET)
     Route: 048
  5. AMLODIPINE [Concomitant]
     Active Substance: AMLODIPINE BESYLATE
     Indication: Hypertension
     Dosage: 10 MG, QD (STARTED 15 YEARS AGO)
     Route: 048

REACTIONS (18)
  - Toxicity to various agents [Unknown]
  - Suicidal ideation [Unknown]
  - Feeling abnormal [Unknown]
  - Illness [Unknown]
  - Vomiting [Recovered/Resolved]
  - Nervousness [Unknown]
  - Gastritis [Unknown]
  - Eating disorder [Unknown]
  - Dehydration [Unknown]
  - Food intolerance [Unknown]
  - Neurosis [Unknown]
  - Abdominal discomfort [Unknown]
  - Pain [Recovered/Resolved]
  - Decreased appetite [Recovered/Resolved]
  - Weight decreased [Unknown]
  - Diarrhoea [Unknown]
  - Fatigue [Unknown]
  - Malaise [Unknown]
